FAERS Safety Report 24881306 (Version 3)
Quarter: 2025Q1

REPORT INFORMATION
  Report Type: Report from Study
  Country: US (occurrence: US)
  Receive Date: 20250124
  Receipt Date: 20250224
  Transmission Date: 20250409
  Serious: Yes (Other)
  Sender: EXELIXIS
  Company Number: US-EXELIXIS-EXL-2024-002441

PATIENT
  Age: 71 Year
  Sex: Male
  Weight: 103.88 kg

DRUGS (14)
  1. CABOMETYX [Suspect]
     Active Substance: CABOZANTINIB S-MALATE
     Indication: Neuroendocrine tumour
     Dosage: 40 MG, QD
     Route: 048
     Dates: start: 20241030
  2. CABOMETYX [Suspect]
     Active Substance: CABOZANTINIB S-MALATE
     Dosage: 20 MG, QD
     Route: 048
     Dates: start: 202411
  3. CABOMETYX [Suspect]
     Active Substance: CABOZANTINIB S-MALATE
     Dosage: 20MG AND 40MG ALTERNATING EVERY OTHER DAY
     Route: 048
  4. METOPROLOL SUCCINATE [Concomitant]
     Active Substance: METOPROLOL SUCCINATE
  5. VITAMINS [Concomitant]
     Active Substance: VITAMINS
  6. PROBIOTICS NOS [Concomitant]
     Active Substance: PROBIOTICS NOS
  7. VENTOLIN HFA [Concomitant]
     Active Substance: ALBUTEROL SULFATE
  8. VITAMIN B COMPLEX [Concomitant]
     Active Substance: CYANOCOBALAMIN\DEXPANTHENOL\NIACINAMIDE\PYRIDOXINE HYDROCHLORIDE\RIBOFLAVIN 5^-PHOSPHATE SODIUM\THIA
  9. VITAMIN C [Concomitant]
     Active Substance: ASCORBIC ACID
  10. VITAMIN D3 [Concomitant]
     Active Substance: CHOLECALCIFEROL
  11. TRAMADOL [Concomitant]
     Active Substance: TRAMADOL
  12. OLANZAPINE [Concomitant]
     Active Substance: OLANZAPINE
  13. SUCRALFATE [Concomitant]
     Active Substance: SUCRALFATE
  14. POTASSIUM CHLORIDE [Concomitant]
     Active Substance: POTASSIUM CHLORIDE

REACTIONS (15)
  - Essential hypertension [Unknown]
  - Myalgia [Not Recovered/Not Resolved]
  - Nail discolouration [Unknown]
  - Fatigue [Not Recovered/Not Resolved]
  - Blister [Recovered/Resolved]
  - Dysphonia [Not Recovered/Not Resolved]
  - Hypocalcaemia [Unknown]
  - Hypoalbuminaemia [Unknown]
  - Hypertransaminasaemia [Unknown]
  - Arthralgia [Not Recovered/Not Resolved]
  - Blood calcitonin abnormal [Unknown]
  - Blood glucose abnormal [Unknown]
  - Lip dry [Unknown]
  - Dyspnoea [Unknown]
  - Off label use [Unknown]

NARRATIVE: CASE EVENT DATE: 20241226
